FAERS Safety Report 7327218-2 (Version None)
Quarter: 2011Q1

REPORT INFORMATION
  Report Type: 
  Country: None (occurrence: None)
  Receive Date: 20110302
  Receipt Date: 20110228
  Transmission Date: 20110831
  Serious: Yes (Disabling, Other)
  Sender: FDA-Public Use
  Company Number: US-PFIZER INC-2011043332

PATIENT
  Sex: Female
  Weight: 81.633 kg

DRUGS (7)
  1. GEODON [Suspect]
     Indication: DEPRESSED LEVEL OF CONSCIOUSNESS
     Dosage: UNK
     Dates: end: 20110101
  2. ZOCOR [Concomitant]
     Indication: BLOOD CHOLESTEROL INCREASED
     Dosage: UNK
  3. NORVASC [Concomitant]
     Indication: HYPERTENSION
     Dosage: UNK
  4. PRISTIQ [Concomitant]
     Indication: BIPOLAR DISORDER
  5. LISINOPRIL [Concomitant]
     Indication: HYPERTENSION
     Dosage: UNK
  6. PRISTIQ [Concomitant]
     Indication: DEPRESSION
     Dosage: 100 MG, 1X/DAY
  7. GEODON [Suspect]
     Indication: AFFECTIVE DISORDER

REACTIONS (2)
  - PARALYSIS [None]
  - INCORRECT DOSE ADMINISTERED [None]
